FAERS Safety Report 6530756-3 (Version None)
Quarter: 2010Q1

REPORT INFORMATION
  Report Type: 
  Country: None (occurrence: None)
  Receive Date: 20100108
  Receipt Date: 20090123
  Transmission Date: 20100710
  Serious: No
  Sender: FDA-Public Use
  Company Number: A0765093A

PATIENT
  Age: 65 Year
  Sex: Female

DRUGS (6)
  1. LOVAZA [Suspect]
     Dosage: 4CAP PER DAY
     Route: 048
     Dates: start: 20090113
  2. LISINOPRIL AND HYDROCHLOROTHIAZIDE [Concomitant]
  3. LEVOTHYROXINE SODIUM [Concomitant]
  4. METOPROLOL TARTRATE [Concomitant]
  5. M.V.I. [Concomitant]
  6. CALCIUM [Concomitant]

REACTIONS (1)
  - DIARRHOEA [None]
